FAERS Safety Report 23264009 (Version 1)
Quarter: 2023Q4

REPORT INFORMATION
  Report Type: Spontaneous
  Country: US (occurrence: None)
  Receive Date: 20231205
  Receipt Date: 20231205
  Transmission Date: 20240109
  Serious: Yes (Hospitalization)
  Sender: FDA-Public Use
  Company Number: None

PATIENT
  Age: 78 Year
  Sex: Male

DRUGS (2)
  1. WARFARIN SODIUM [Suspect]
     Active Substance: WARFARIN SODIUM
     Dosage: 7.5 MG EVERY DAY PO
     Route: 048
     Dates: start: 20120601, end: 20231020
  2. CLOPIDOGREL BISULFATE [Suspect]
     Active Substance: CLOPIDOGREL BISULFATE
     Dosage: FREQUENCY : DAILY;?
     Route: 048
     Dates: start: 20111027, end: 20231020

REACTIONS (4)
  - Gastrointestinal haemorrhage [None]
  - International normalised ratio increased [None]
  - Diarrhoea [None]
  - Gastrointestinal infection [None]

NARRATIVE: CASE EVENT DATE: 20231020
